FAERS Safety Report 8181162-X (Version None)
Quarter: 2012Q1

REPORT INFORMATION
  Report Type: 
  Country: None (occurrence: None)
  Receive Date: 20120302
  Receipt Date: 20120227
  Transmission Date: 20120608
  Serious: Yes (Hospitalization, Other)
  Sender: FDA-Public Use
  Company Number: US-GLAXOSMITHKLINE-A0963531A

PATIENT
  Age: 77 Year
  Sex: Male

DRUGS (8)
  1. BACTROBAN [Suspect]
     Indication: RHINITIS
     Route: 045
     Dates: start: 20120120, end: 20120124
  2. ISOSORBIDE MONONITRATE [Concomitant]
  3. BACTRIM DS [Suspect]
     Indication: RHINITIS
     Route: 048
     Dates: start: 20120120, end: 20120122
  4. LIPITOR [Concomitant]
  5. ASA LOW DOSE [Concomitant]
  6. TERAZOSIN HCL [Concomitant]
  7. METOPROLOL TARTRATE [Concomitant]
  8. AMLODIPINE [Concomitant]

REACTIONS (5)
  - OEDEMA MOUTH [None]
  - ANGIOEDEMA [None]
  - GINGIVAL SWELLING [None]
  - DRUG HYPERSENSITIVITY [None]
  - SWOLLEN TONGUE [None]
